FAERS Safety Report 10205623 (Version 3)
Quarter: 2014Q2

REPORT INFORMATION
  Report Type: Report from Study
  Country: FR (occurrence: FR)
  Receive Date: 20140529
  Receipt Date: 20140611
  Transmission Date: 20141212
  Serious: Yes (Hospitalization)
  Sender: FDA-Public Use
  Company Number: FR-VERTEX PHARMACEUTICALS INC-2014-002542

PATIENT
  Age: 62 Year
  Sex: Female
  Weight: 65 kg

DRUGS (12)
  1. VX-950 (TELAPREVIR) [Suspect]
     Indication: HEPATITIS C
     Dosage: 750 MG, TID
     Route: 048
     Dates: start: 20110510, end: 20110623
  2. COPEGUS [Suspect]
     Indication: HEPATITIS C
     Dosage: 1000 MG, QD
     Route: 048
     Dates: start: 20110510, end: 20110623
  3. PEGASYS [Suspect]
     Indication: HEPATITIS C
     Dosage: 180 ?G, QW
     Route: 058
     Dates: start: 20110510, end: 20110621
  4. STILNOX [Concomitant]
     Indication: INSOMNIA
     Dosage: 5 MG, QD
     Route: 048
     Dates: start: 2009
  5. LEVOTHYROX [Concomitant]
     Indication: HYPOTHYROIDISM
     Dosage: 50 ?G, QD
     Route: 048
     Dates: start: 20100911
  6. CELECTOL [Concomitant]
     Indication: HYPERTENSION
     Dosage: 200 MG, QD
     Route: 048
     Dates: start: 201009
  7. LERCANIDIPINE HYDROCHLORIDE [Concomitant]
     Indication: HYPERTENSION
     Dosage: 20 MG, QD
     Route: 048
     Dates: start: 201009
  8. ALDACTAZINE [Concomitant]
     Indication: HYPERTENSION
     Dosage: 1 DF, QD
     Route: 048
     Dates: start: 201009
  9. DEROXAT [Concomitant]
     Indication: DEPRESSION
     Dosage: 20 MG, QD
     Route: 048
     Dates: start: 2010
  10. ENALAPRIL [Concomitant]
     Indication: HYPERTENSION
     Dosage: 20 MG, QD
     Route: 048
     Dates: start: 201009
  11. DELURSAN [Concomitant]
     Indication: LIVER DISORDER
     Dosage: UNK UNK, BID
     Route: 065
  12. RENITEC (ENALAPRIL) [Concomitant]
     Indication: HYPERTENSION
     Route: 065
     Dates: start: 2010

REACTIONS (3)
  - Psychiatric decompensation [Recovered/Resolved]
  - Laryngitis [Unknown]
  - Sinusitis [Recovered/Resolved]
